FAERS Safety Report 8039856-2 (Version None)
Quarter: 2012Q1

REPORT INFORMATION
  Report Type: 
  Country: None (occurrence: None)
  Receive Date: 20120111
  Receipt Date: 20111221
  Transmission Date: 20120608
  Serious: No
  Sender: FDA-Public Use
  Company Number: US-AMGEN-USASP2011064570

PATIENT
  Sex: Female

DRUGS (2)
  1. ENBREL [Suspect]
     Indication: PSORIATIC ARTHROPATHY
     Dosage: 50 MG, QWK
     Dates: start: 20070615
  2. ENBREL [Suspect]
     Indication: PSORIASIS

REACTIONS (6)
  - URINARY TRACT INFECTION [None]
  - INJECTION SITE DISCOMFORT [None]
  - PSORIASIS [None]
  - RASH [None]
  - DRUG HYPERSENSITIVITY [None]
  - DRUG ERUPTION [None]
